FAERS Safety Report 17702911 (Version 1)
Quarter: 2020Q2

REPORT INFORMATION
  Report Type: Spontaneous
  Country: US (occurrence: US)
  Receive Date: 20200423
  Receipt Date: 20200423
  Transmission Date: 20200714
  Serious: Yes (Other)
  Sender: FDA-Public Use
  Company Number: US-JAZZ-2020-US-002003

PATIENT
  Age: 65 Year
  Sex: Male

DRUGS (2)
  1. XYREM [Suspect]
     Active Substance: SODIUM OXYBATE
     Indication: PRODUCT USED FOR UNKNOWN INDICATION
     Dosage: 4.5 GRAM
     Route: 048
  2. XYREM [Suspect]
     Active Substance: SODIUM OXYBATE
     Dosage: 9 GRAM
     Route: 048

REACTIONS (3)
  - Wrong dose [Unknown]
  - Depressed level of consciousness [Recovered/Resolved]
  - Snoring [Unknown]

NARRATIVE: CASE EVENT DATE: 20200128
